APPROVED DRUG PRODUCT: HEPARIN SODIUM 2,000 UNITS IN SODIUM CHLORIDE 0.9% IN PLASTIC CONTAINER
Active Ingredient: HEPARIN SODIUM
Strength: 200 UNITS/100ML
Dosage Form/Route: INJECTABLE;INJECTION
Application: N019953 | Product #002
Applicant: B BRAUN MEDICAL INC
Approved: Dec 15, 2023 | RLD: Yes | RS: Yes | Type: RX